FAERS Safety Report 10497305 (Version 1)
Quarter: 2014Q4

REPORT INFORMATION
  Report Type: Other
  Country: TR (occurrence: TR)
  Receive Date: 20141006
  Receipt Date: 20141006
  Transmission Date: 20150528
  Serious: No
  Sender: FDA-Public Use
  Company Number: TR-LUPIN PHARMACEUTICALS INC.-2014-01350

PATIENT
  Age: 53 Year
  Sex: Male

DRUGS (4)
  1. DULOXETINE [Suspect]
     Active Substance: DULOXETINE
     Indication: DEPRESSION
     Dosage: 60MG
     Route: 065
  2. ALPRAZOLAM. [Concomitant]
     Active Substance: ALPRAZOLAM
     Indication: DEPRESSION
  3. ALPRAZOLAM. [Concomitant]
     Active Substance: ALPRAZOLAM
     Indication: ANXIETY DISORDER
     Route: 065
  4. DULOXETINE [Suspect]
     Active Substance: DULOXETINE
     Indication: ANXIETY DISORDER
     Route: 065

REACTIONS (1)
  - Akathisia [Recovering/Resolving]
